FAERS Safety Report 16943833 (Version 1)
Quarter: 2019Q4

REPORT INFORMATION
  Report Type: Report from Study
  Country: IT (occurrence: IT)
  Receive Date: 20191022
  Receipt Date: 20191022
  Transmission Date: 20200122
  Serious: Yes (Other)
  Sender: FDA-Public Use
  Company Number: IT-TEVA-2019-IT-1124166

PATIENT
  Age: 78 Year
  Sex: Male

DRUGS (1)
  1. LISINOPRIL. [Suspect]
     Active Substance: LISINOPRIL
     Route: 065

REACTIONS (2)
  - Face oedema [Recovering/Resolving]
  - Lip oedema [Recovering/Resolving]

NARRATIVE: CASE EVENT DATE: 20190915
